FAERS Safety Report 6230427-7 (Version None)
Quarter: 2009Q2

REPORT INFORMATION
  Report Type: 
  Country: None (occurrence: None)
  Receive Date: 20090615
  Receipt Date: 20090330
  Transmission Date: 20091009
  Serious: No
  Sender: FDA-Public Use
  Company Number: US-ABBOTT-09P-163-0565789-00

PATIENT
  Sex: Male
  Weight: 72.64 kg

DRUGS (5)
  1. TRILIPIX [Suspect]
     Indication: BLOOD TRIGLYCERIDES INCREASED
     Route: 048
     Dates: start: 20090213
  2. TRILIPIX [Suspect]
     Indication: HIGH DENSITY LIPOPROTEIN DECREASED
  3. COUMADIN [Suspect]
     Indication: ATRIAL FIBRILLATION
     Dosage: TAKING 1.5 AND 1MG. ADJUSTED ACCORDING TO PT INR LEVELS. CURRENTLY ON 4 OF 1.5MG TAKING
     Route: 048
  4. RAMIPRIL [Concomitant]
     Indication: DRUG USE FOR UNKNOWN INDICATION
  5. COREG [Concomitant]
     Indication: DRUG USE FOR UNKNOWN INDICATION

REACTIONS (2)
  - BLOOD DISORDER [None]
  - PROTHROMBIN TIME RATIO DECREASED [None]
